FAERS Safety Report 5170206-5 (Version None)
Quarter: 2006Q4

REPORT INFORMATION
  Report Type: 
  Country: None (occurrence: None)
  Receive Date: 20061212
  Receipt Date: 20061005
  Transmission Date: 20070319
  Serious: Yes (Hospitalization)
  Sender: FDA-Public Use
  Company Number: FR-ELI_LILLY_AND_COMPANY-FR200610001113

PATIENT
  Age: 67 Year
  Sex: Female

DRUGS (8)
  1. PROZAC [Suspect]
     Dosage: 1 D/F, DAILY (1/D)
     Route: 048
  2. SINTROM                                 /NET/ [Concomitant]
     Dosage: 0.75 D/F, DAILY (1/D)
     Route: 048
  3. VALSARTAN AND HYDROCHLOROTHIAZIDE [Concomitant]
     Dosage: 1 D/F, DAILY (1/D)
     Route: 048
  4. EUPRESSYL [Concomitant]
     Dosage: 120 MG, DAILY (1/D)
     Route: 048
  5. FUROSEMIDE ^DAKOTA PHARM^ [Concomitant]
     Dosage: 20 MG, DAILY (1/D)
     Route: 048
  6. AVLOCARDYL [Concomitant]
     Dosage: 20 MG, DAILY (1/D)
     Route: 048
  7. ALDACTONE                               /USA/ [Concomitant]
     Route: 048
  8. DIGOXIN [Concomitant]
     Route: 048

REACTIONS (2)
  - DERMATITIS BULLOUS [None]
  - DRUG INEFFECTIVE [None]
